FAERS Safety Report 24592529 (Version 4)
Quarter: 2024Q4

REPORT INFORMATION
  Report Type: Spontaneous
  Country: BE (occurrence: BE)
  Receive Date: 20241108
  Receipt Date: 20241230
  Transmission Date: 20250114
  Serious: Yes (Life-Threatening, Hospitalization, Other)
  Sender: AUROBINDO
  Company Number: BE-AUROBINDO-AUR-APL-2024-055333

PATIENT
  Age: 68 Year
  Sex: Female
  Weight: 50.2 kg

DRUGS (10)
  1. DOCETAXEL [Suspect]
     Active Substance: DOCETAXEL
     Indication: Non-small cell lung cancer metastatic
     Dosage: 75 MILLIGRAM/SQ. METER, DAY 1 OF A 21-DAY CYCLE (Q3W)
     Route: 042
     Dates: start: 20240513, end: 20240531
  2. DOCETAXEL [Suspect]
     Active Substance: DOCETAXEL
     Dosage: 75 MILLIGRAM/SQ. METER, DAY 1 OF A 21-DAY CYCLE (Q3W)
     Route: 042
     Dates: start: 20240513, end: 20241004
  3. ALIZAPRIDE [Concomitant]
     Active Substance: ALIZAPRIDE
     Indication: Nausea
     Dosage: UNK
     Route: 042
     Dates: start: 20240513, end: 20240513
  4. ATORVASTATIN [Concomitant]
     Active Substance: ATORVASTATIN
     Indication: Blood cholesterol increased
     Dosage: UNK
     Route: 048
     Dates: start: 20070101
  5. DOMPERIDONE [Concomitant]
     Active Substance: DOMPERIDONE
     Indication: Nausea
     Dosage: UNK
     Route: 048
     Dates: start: 20240513
  6. FOLIC ACID [Concomitant]
     Active Substance: FOLIC ACID
     Indication: Folate deficiency
     Dosage: UNK
     Route: 065
     Dates: start: 20240503
  7. ALIZAPRIDE HYDROCHLORIDE [Concomitant]
     Active Substance: ALIZAPRIDE HYDROCHLORIDE
     Indication: Nausea
     Dosage: UNK
     Route: 048
     Dates: start: 20240101
  8. METHYLPREDNISOLONE [Concomitant]
     Active Substance: METHYLPREDNISOLONE
     Indication: Prophylaxis
     Dosage: UNK
     Route: 048
     Dates: start: 20240512
  9. TRAMADOL HYDROCHLORIDE [Concomitant]
     Active Substance: TRAMADOL HYDROCHLORIDE
     Indication: Pain
     Dosage: UNK
     Route: 048
     Dates: start: 20240105
  10. URSODEOXYCHOLZUUR [Concomitant]
     Indication: Cholestasis
     Dosage: UNK
     Route: 048
     Dates: start: 20240412

REACTIONS (3)
  - Neutrophil count decreased [Recovered/Resolved]
  - Acute kidney injury [Recovered/Resolved]
  - General physical health deterioration [Recovered/Resolved]

NARRATIVE: CASE EVENT DATE: 20240523
